FAERS Safety Report 5764511-9 (Version None)
Quarter: 2008Q2

REPORT INFORMATION
  Report Type: 
  Country: None (occurrence: None)
  Receive Date: 20080610
  Receipt Date: 20080530
  Transmission Date: 20081010
  Serious: Yes (Hospitalization)
  Sender: FDA-Public Use
  Company Number: US-PFIZER INC-2008026433

PATIENT
  Sex: Male
  Weight: 83.9 kg

DRUGS (8)
  1. CHANTIX [Suspect]
     Indication: TOBACCO ABUSE
  2. ZYPREXA [Suspect]
     Indication: DELUSIONAL DISORDER, MIXED TYPE
     Dates: start: 20010101
  3. ZYPREXA [Suspect]
     Indication: MENTAL DISORDER
  4. ZYPREXA [Suspect]
     Indication: AFFECTIVE DISORDER
  5. TRIAMTERENE AND HYDROCHLOROTHIAZIDE [Concomitant]
  6. SIMVASTATIN [Concomitant]
  7. ASPIRIN [Concomitant]
  8. TRAZODONE HCL [Concomitant]

REACTIONS (2)
  - MENTAL DISORDER [None]
  - SCHIZOPHRENIA [None]
